FAERS Safety Report 21166586 (Version 6)
Quarter: 2023Q1

REPORT INFORMATION
  Report Type: Spontaneous
  Country: GB (occurrence: GB)
  Receive Date: 20220803
  Receipt Date: 20230222
  Transmission Date: 20230417
  Serious: Yes (Hospitalization, Other)
  Sender: FDA-Public Use
  Company Number: GB-TAKEDA-2021TUS082084

PATIENT

DRUGS (12)
  1. ACYCLOVIR [Suspect]
     Active Substance: ACYCLOVIR
     Indication: Product used for unknown indication
     Dosage: 800 MG, QD (400 MILLIGRAM, BID)
     Route: 050
  2. COTRIMOXAZOLE [Suspect]
     Active Substance: SULFAMETHOXAZOLE\TRIMETHOPRIM
     Indication: Product used for unknown indication
     Dosage: UNK, BID (AT AN UNSPECIFIED DOSE ONCE DAILY)
     Route: 050
  3. METOCLOPRAMIDE [Suspect]
     Active Substance: METOCLOPRAMIDE
     Indication: Product used for unknown indication
     Dosage: 30 MG, QD (10 MILLIGRAM, TID)
     Route: 050
  4. CALCIUM CARBONATE\CHOLECALCIFEROL [Suspect]
     Active Substance: CALCIUM CARBONATE\CHOLECALCIFEROL
     Indication: Product used for unknown indication
     Dosage: AT AN UNSPECIFIED DOSE ONCE DAILY (DOSAGE TEXT: BID)
     Route: 050
  5. DEXAMETHASONE [Suspect]
     Active Substance: DEXAMETHASONE
     Indication: Product used for unknown indication
     Dosage: 10 MG (10 MILLIGRAM ON DAY 1, 8, 15 AND 22 DAYS)
     Route: 050
  6. LOPERAMIDE [Suspect]
     Active Substance: LOPERAMIDE
     Indication: Product used for unknown indication
     Dosage: 2 MG (2 MILLIGRAM AT AN UNSPECIFIED FRQUENCY)
     Route: 050
  7. NINLARO [Suspect]
     Active Substance: IXAZOMIB CITRATE
     Indication: Product used for unknown indication
     Dosage: 2.3 MG (2.3 MILLIGRAM, ONCE A WEEK)
     Route: 050
  8. OMEPRAZOLE [Suspect]
     Active Substance: OMEPRAZOLE
     Indication: Product used for unknown indication
     Dosage: 20 MG, QD
     Route: 050
  9. REVLIMID [Suspect]
     Active Substance: LENALIDOMIDE
     Indication: Product used for unknown indication
     Dosage: 400 MG (400 MILLIGRAMS AT AN UNSPECIFIED FREQUENCY)
     Route: 050
  10. REVLIMID [Suspect]
     Active Substance: LENALIDOMIDE
     Dosage: 15 MG, QD (15 MILLIGRAM, ONCE A DAY ON DAYS 1-21)
     Route: 050
  11. XARELTO [Suspect]
     Active Substance: RIVAROXABAN
     Indication: Product used for unknown indication
     Dosage: 20 MG (20 MILLIGRAM, AT AN UNSPECIFIED FREQUENCY)
     Route: 050
  12. XARELTO [Suspect]
     Active Substance: RIVAROXABAN
     Dosage: 10 MG, QD
     Route: 050

REACTIONS (16)
  - Cerebrovascular accident [Unknown]
  - Inappropriate schedule of product administration [Unknown]
  - Hypoaesthesia [Unknown]
  - Neutrophil count abnormal [Unknown]
  - Balance disorder [Unknown]
  - Malaise [Unknown]
  - Fall [Unknown]
  - Gait disturbance [Unknown]
  - Musculoskeletal chest pain [Unknown]
  - Limb discomfort [Unknown]
  - Productive cough [Unknown]
  - Feeling cold [Unknown]
  - Chromaturia [Unknown]
  - Decreased appetite [Unknown]
  - Confusional state [Unknown]
  - Pyrexia [Unknown]
